FAERS Safety Report 22261718 (Version 9)
Quarter: 2025Q3

REPORT INFORMATION
  Report Type: Spontaneous
  Country: CA (occurrence: CA)
  Receive Date: 20230428
  Receipt Date: 20250805
  Transmission Date: 20251021
  Serious: Yes (Death, Life-Threatening, Hospitalization, Disabling, Other)
  Sender: Haleon PLC
  Company Number: CA-002147023-NVSC2023CA088007

PATIENT
  Age: 50 Year
  Sex: Female
  Weight: 68 kg

DRUGS (444)
  1. VOLTAREN [Suspect]
     Active Substance: DICLOFENAC SODIUM
     Indication: Product used for unknown indication
  2. VOLTAREN [Suspect]
     Active Substance: DICLOFENAC SODIUM
  3. VOLTAREN [Suspect]
     Active Substance: DICLOFENAC SODIUM
  4. CHLORHEXIDINE [Suspect]
     Active Substance: CHLORHEXIDINE
     Indication: Product used for unknown indication
  5. CHLORHEXIDINE [Suspect]
     Active Substance: CHLORHEXIDINE
  6. CHLORHEXIDINE [Suspect]
     Active Substance: CHLORHEXIDINE
     Route: 048
  7. ACETAMINOPHEN [Suspect]
     Active Substance: ACETAMINOPHEN
     Indication: Product used for unknown indication
  8. CODEINE [Suspect]
     Active Substance: CODEINE
     Indication: Product used for unknown indication
  9. CODEINE [Suspect]
     Active Substance: CODEINE
  10. CODEINE [Suspect]
     Active Substance: CODEINE
  11. CODEINE [Suspect]
     Active Substance: CODEINE
  12. CODEINE [Suspect]
     Active Substance: CODEINE
  13. ADALIMUMAB [Suspect]
     Active Substance: ADALIMUMAB
     Route: 058
  14. ADALIMUMAB [Suspect]
     Active Substance: ADALIMUMAB
     Route: 058
  15. ADALIMUMAB [Suspect]
     Active Substance: ADALIMUMAB
     Route: 048
  16. ADALIMUMAB [Suspect]
     Active Substance: ADALIMUMAB
  17. KEVZARA [Suspect]
     Active Substance: SARILUMAB
     Indication: Product used for unknown indication
  18. KEVZARA [Suspect]
     Active Substance: SARILUMAB
  19. KEVZARA [Suspect]
     Active Substance: SARILUMAB
  20. COSENTYX [Concomitant]
     Active Substance: SECUKINUMAB
     Indication: Product used for unknown indication
  21. CAFFEINE CITRATE [Concomitant]
     Active Substance: CAFFEINE CITRATE
     Indication: Product used for unknown indication
  22. DESOGESTREL [Concomitant]
     Active Substance: DESOGESTREL
     Indication: Product used for unknown indication
  23. CETIRIZINE HYDROCHLORIDE\PSEUDOEPHEDRINE HYDROCHLORIDE [Suspect]
     Active Substance: CETIRIZINE HYDROCHLORIDE\PSEUDOEPHEDRINE HYDROCHLORIDE
     Indication: Rheumatoid arthritis
  24. HYDROCORTISONE BUTYRATE [Suspect]
     Active Substance: HYDROCORTISONE BUTYRATE
     Indication: Rheumatoid arthritis
     Route: 048
  25. PANTOPRAZOLE MAGNESIUM [Suspect]
     Active Substance: PANTOPRAZOLE MAGNESIUM
     Indication: Product used for unknown indication
  26. PANTOPRAZOLE MAGNESIUM [Suspect]
     Active Substance: PANTOPRAZOLE MAGNESIUM
  27. DESOGESTREL\ETHINYL ESTRADIOL [Concomitant]
     Active Substance: DESOGESTREL\ETHINYL ESTRADIOL
     Indication: Product used for unknown indication
  28. CORTISONE ACETATE [Suspect]
     Active Substance: CORTISONE ACETATE
     Indication: Rheumatoid arthritis
     Route: 048
  29. CORTISONE ACETATE [Suspect]
     Active Substance: CORTISONE ACETATE
  30. CORTISONE ACETATE [Suspect]
     Active Substance: CORTISONE ACETATE
  31. CORTISONE ACETATE [Suspect]
     Active Substance: CORTISONE ACETATE
     Route: 048
  32. NAPROXEN [Suspect]
     Active Substance: NAPROXEN
     Indication: Rheumatoid arthritis
  33. NAPROXEN [Suspect]
     Active Substance: NAPROXEN
     Dosage: 1 DF, QD (1 DOSAGE FORM)
  34. NAPROXEN [Suspect]
     Active Substance: NAPROXEN
  35. STELARA [Suspect]
     Active Substance: USTEKINUMAB
     Indication: Rheumatoid arthritis
     Route: 058
  36. STELARA [Suspect]
     Active Substance: USTEKINUMAB
     Indication: Psoriatic arthropathy
     Route: 042
  37. STELARA [Suspect]
     Active Substance: USTEKINUMAB
     Route: 058
  38. STELARA [Suspect]
     Active Substance: USTEKINUMAB
     Route: 042
  39. STELARA [Suspect]
     Active Substance: USTEKINUMAB
     Route: 042
  40. STELARA [Suspect]
     Active Substance: USTEKINUMAB
     Route: 058
  41. STELARA [Suspect]
     Active Substance: USTEKINUMAB
  42. HUMIRA [Suspect]
     Active Substance: ADALIMUMAB
     Indication: Psoriatic arthropathy
     Dosage: 40 MG QW, DOSE FORM: SOLUTION
     Route: 058
  43. HUMIRA [Suspect]
     Active Substance: ADALIMUMAB
     Indication: Rheumatoid arthritis
     Route: 058
  44. HUMIRA [Suspect]
     Active Substance: ADALIMUMAB
     Route: 058
  45. HUMIRA [Suspect]
     Active Substance: ADALIMUMAB
     Route: 058
  46. HUMIRA [Suspect]
     Active Substance: ADALIMUMAB
     Route: 058
  47. HUMIRA [Suspect]
     Active Substance: ADALIMUMAB
     Route: 058
  48. HUMIRA [Suspect]
     Active Substance: ADALIMUMAB
     Route: 058
  49. HUMIRA [Suspect]
     Active Substance: ADALIMUMAB
  50. HUMIRA [Suspect]
     Active Substance: ADALIMUMAB
     Route: 058
  51. DICLOFENAC DIETHYLAMINE [Suspect]
     Active Substance: DICLOFENAC DIETHYLAMINE
     Indication: Rheumatoid arthritis
  52. SOLU-MEDROL [Suspect]
     Active Substance: METHYLPREDNISOLONE SODIUM SUCCINATE
     Indication: Product used for unknown indication
  53. CIMZIA [Suspect]
     Active Substance: CERTOLIZUMAB PEGOL
     Indication: Psoriasis
     Route: 058
  54. CIMZIA [Suspect]
     Active Substance: CERTOLIZUMAB PEGOL
     Indication: Psoriatic arthropathy
     Route: 058
  55. CIMZIA [Suspect]
     Active Substance: CERTOLIZUMAB PEGOL
     Indication: Rheumatoid arthritis
     Route: 058
  56. CIMZIA [Suspect]
     Active Substance: CERTOLIZUMAB PEGOL
     Route: 058
  57. CIMZIA [Suspect]
     Active Substance: CERTOLIZUMAB PEGOL
     Route: 058
  58. CIMZIA [Suspect]
     Active Substance: CERTOLIZUMAB PEGOL
     Route: 058
  59. CIMZIA [Suspect]
     Active Substance: CERTOLIZUMAB PEGOL
     Route: 058
  60. CODEINE PHOSPHATE [Concomitant]
     Active Substance: CODEINE PHOSPHATE
     Indication: Product used for unknown indication
  61. PREDNISONE [Suspect]
     Active Substance: PREDNISONE
     Indication: Rheumatoid arthritis
     Route: 048
  62. ADVIL [Suspect]
     Active Substance: IBUPROFEN
     Indication: Rheumatoid arthritis
  63. PHTHALYLSULFATHIAZOLE [Suspect]
     Active Substance: PHTHALYLSULFATHIAZOLE
     Indication: Rheumatoid arthritis
  64. PHTHALYLSULFATHIAZOLE [Suspect]
     Active Substance: PHTHALYLSULFATHIAZOLE
  65. PHTHALYLSULFATHIAZOLE [Suspect]
     Active Substance: PHTHALYLSULFATHIAZOLE
     Route: 048
  66. PHTHALYLSULFATHIAZOLE [Suspect]
     Active Substance: PHTHALYLSULFATHIAZOLE
  67. PHTHALYLSULFATHIAZOLE [Suspect]
     Active Substance: PHTHALYLSULFATHIAZOLE
     Route: 048
  68. PHTHALYLSULFATHIAZOLE [Suspect]
     Active Substance: PHTHALYLSULFATHIAZOLE
     Route: 016
  69. PHTHALYLSULFATHIAZOLE [Suspect]
     Active Substance: PHTHALYLSULFATHIAZOLE
  70. PHTHALYLSULFATHIAZOLE [Suspect]
     Active Substance: PHTHALYLSULFATHIAZOLE
  71. PHTHALYLSULFATHIAZOLE [Suspect]
     Active Substance: PHTHALYLSULFATHIAZOLE
  72. DICLOFENAC POTASSIUM [Concomitant]
     Active Substance: DICLOFENAC POTASSIUM
     Indication: Product used for unknown indication
  73. LEFLUNOMIDE [Suspect]
     Active Substance: LEFLUNOMIDE
     Indication: Rheumatoid arthritis
     Route: 058
  74. LEFLUNOMIDE [Suspect]
     Active Substance: LEFLUNOMIDE
     Dosage: 1 DOSAGE FORM QD
  75. LEFLUNOMIDE [Suspect]
     Active Substance: LEFLUNOMIDE
     Route: 048
  76. LEFLUNOMIDE [Suspect]
     Active Substance: LEFLUNOMIDE
  77. LEFLUNOMIDE [Suspect]
     Active Substance: LEFLUNOMIDE
     Route: 048
  78. LEFLUNOMIDE [Suspect]
     Active Substance: LEFLUNOMIDE
     Route: 048
  79. LEFLUNOMIDE [Suspect]
     Active Substance: LEFLUNOMIDE
     Dosage: 20 DF, QD (20 DOSAGE FORM, QD)
     Route: 048
  80. LEFLUNOMIDE [Suspect]
     Active Substance: LEFLUNOMIDE
     Route: 058
  81. FLUMETHASONE PIVALATE [Suspect]
     Active Substance: FLUMETHASONE PIVALATE
     Indication: Rheumatoid arthritis
     Route: 058
  82. FLUMETHASONE PIVALATE [Suspect]
     Active Substance: FLUMETHASONE PIVALATE
  83. FLUMETHASONE PIVALATE [Suspect]
     Active Substance: FLUMETHASONE PIVALATE
  84. ALENDRONATE SODIUM [Suspect]
     Active Substance: ALENDRONATE SODIUM
     Indication: Rheumatoid arthritis
  85. ALENDRONATE SODIUM [Suspect]
     Active Substance: ALENDRONATE SODIUM
     Route: 048
  86. ALENDRONATE SODIUM [Suspect]
     Active Substance: ALENDRONATE SODIUM
  87. ALENDRONATE SODIUM [Suspect]
     Active Substance: ALENDRONATE SODIUM
     Route: 048
  88. FOLIC ACID [Suspect]
     Active Substance: FOLIC ACID
     Indication: Rheumatoid arthritis
  89. FOLIC ACID [Suspect]
     Active Substance: FOLIC ACID
  90. FOLIC ACID [Suspect]
     Active Substance: FOLIC ACID
     Route: 048
  91. FOLIC ACID [Suspect]
     Active Substance: FOLIC ACID
  92. FOLIC ACID [Suspect]
     Active Substance: FOLIC ACID
  93. FOLIC ACID [Suspect]
     Active Substance: FOLIC ACID
  94. FOLIC ACID [Suspect]
     Active Substance: FOLIC ACID
  95. FOLIC ACID [Suspect]
     Active Substance: FOLIC ACID
     Route: 048
  96. FOLIC ACID [Suspect]
     Active Substance: FOLIC ACID
     Route: 048
  97. FOLIC ACID [Suspect]
     Active Substance: FOLIC ACID
  98. FOLIC ACID [Suspect]
     Active Substance: FOLIC ACID
  99. FOLIC ACID [Suspect]
     Active Substance: FOLIC ACID
  100. FOLIC ACID [Suspect]
     Active Substance: FOLIC ACID
  101. FOLIC ACID [Suspect]
     Active Substance: FOLIC ACID
     Route: 058
  102. FOLIC ACID [Suspect]
     Active Substance: FOLIC ACID
     Route: 058
  103. FOLIC ACID [Suspect]
     Active Substance: FOLIC ACID
     Route: 058
  104. FOLIC ACID [Suspect]
     Active Substance: FOLIC ACID
     Route: 048
  105. FOLIC ACID [Suspect]
     Active Substance: FOLIC ACID
  106. FOSAMAX [Suspect]
     Active Substance: ALENDRONATE SODIUM
     Indication: Rheumatoid arthritis
  107. FOSAMAX [Suspect]
     Active Substance: ALENDRONATE SODIUM
  108. FOSAMAX [Suspect]
     Active Substance: ALENDRONATE SODIUM
     Route: 048
  109. FOSAMAX [Suspect]
     Active Substance: ALENDRONATE SODIUM
  110. FOSAMAX [Suspect]
     Active Substance: ALENDRONATE SODIUM
  111. FOSAMAX [Suspect]
     Active Substance: ALENDRONATE SODIUM
     Route: 058
  112. FOSAMAX [Suspect]
     Active Substance: ALENDRONATE SODIUM
     Route: 048
  113. FOSAMAX [Suspect]
     Active Substance: ALENDRONATE SODIUM
     Route: 058
  114. FOSAMAX [Suspect]
     Active Substance: ALENDRONATE SODIUM
  115. FOSAMAX [Suspect]
     Active Substance: ALENDRONATE SODIUM
  116. SULFASALAZINE [Concomitant]
     Active Substance: SULFASALAZINE
     Indication: Product used for unknown indication
  117. CORTISONE [Suspect]
     Active Substance: CORTISONE
     Indication: Rheumatoid arthritis
     Route: 058
  118. CORTISONE [Suspect]
     Active Substance: CORTISONE
  119. CORTISONE [Suspect]
     Active Substance: CORTISONE
     Route: 048
  120. CORTISONE [Suspect]
     Active Substance: CORTISONE
  121. CORTISONE [Suspect]
     Active Substance: CORTISONE
  122. CORTISONE [Suspect]
     Active Substance: CORTISONE
     Route: 058
  123. CELEBREX [Suspect]
     Active Substance: CELECOXIB
     Indication: Arthritis
  124. CELEBREX [Suspect]
     Active Substance: CELECOXIB
     Indication: Rheumatoid arthritis
     Dosage: 2 DF (2 DOSAGE FORM)
     Route: 048
  125. CELEBREX [Suspect]
     Active Substance: CELECOXIB
     Dosage: 1 DF, QD (1 DOSAGE FORM, QD)
     Route: 048
  126. CELEBREX [Suspect]
     Active Substance: CELECOXIB
     Dosage: 2 DF, QD (2 DOSAGE FORM)
     Route: 048
  127. CELEBREX [Suspect]
     Active Substance: CELECOXIB
     Dosage: 20 MG QD
     Route: 048
  128. CELEBREX [Suspect]
     Active Substance: CELECOXIB
     Dosage: UNK DOSE QD
     Route: 048
  129. TYLENOL [Concomitant]
     Active Substance: ACETAMINOPHEN
     Indication: Product used for unknown indication
  130. OXYCODONE AND ACETAMINOPHEN [Suspect]
     Active Substance: ACETAMINOPHEN\OXYCODONE HYDROCHLORIDE
     Indication: Product used for unknown indication
  131. CAFFEINE [Concomitant]
     Active Substance: CAFFEINE
     Indication: Product used for unknown indication
  132. PREVACID [Concomitant]
     Active Substance: LANSOPRAZOLE
     Indication: Product used for unknown indication
  133. MAGNESIUM [Concomitant]
     Active Substance: MAGNESIUM
     Indication: Product used for unknown indication
  134. PLAQUENIL [Suspect]
     Active Substance: HYDROXYCHLOROQUINE SULFATE
     Indication: Rheumatoid arthritis
     Dosage: 400 MG QD
     Route: 048
  135. PLAQUENIL [Suspect]
     Active Substance: HYDROXYCHLOROQUINE SULFATE
     Dosage: 1 DOSAGE FORM QD
     Route: 048
  136. PLAQUENIL [Suspect]
     Active Substance: HYDROXYCHLOROQUINE SULFATE
  137. PLAQUENIL [Suspect]
     Active Substance: HYDROXYCHLOROQUINE SULFATE
  138. PLAQUENIL [Suspect]
     Active Substance: HYDROXYCHLOROQUINE SULFATE
     Dosage: 400 MG QD
     Route: 048
  139. PLAQUENIL [Suspect]
     Active Substance: HYDROXYCHLOROQUINE SULFATE
     Route: 048
  140. METHOTREXATE [Suspect]
     Active Substance: METHOTREXATE
     Indication: Rheumatoid arthritis
     Dosage: 15 MG, QD
     Route: 048
  141. METHOTREXATE [Suspect]
     Active Substance: METHOTREXATE
     Route: 048
  142. METHOTREXATE [Suspect]
     Active Substance: METHOTREXATE
     Route: 048
  143. METHOTREXATE [Suspect]
     Active Substance: METHOTREXATE
  144. METHOTREXATE [Suspect]
     Active Substance: METHOTREXATE
     Dosage: 2 G, QD
     Route: 048
  145. METHOTREXATE [Suspect]
     Active Substance: METHOTREXATE
     Route: 048
  146. METHOTREXATE [Suspect]
     Active Substance: METHOTREXATE
     Dosage: 1 DF, QD
     Route: 048
  147. METHOTREXATE [Suspect]
     Active Substance: METHOTREXATE
     Route: 058
  148. METHOTREXATE [Suspect]
     Active Substance: METHOTREXATE
  149. METHOTREXATE [Suspect]
     Active Substance: METHOTREXATE
     Route: 048
  150. METHOTREXATE [Suspect]
     Active Substance: METHOTREXATE
     Dosage: 20 MG, QD
     Route: 048
  151. METHOTREXATE [Suspect]
     Active Substance: METHOTREXATE
  152. METHOTREXATE [Suspect]
     Active Substance: METHOTREXATE
     Route: 048
  153. METHOTREXATE [Suspect]
     Active Substance: METHOTREXATE
     Route: 048
  154. METHOTREXATE [Suspect]
     Active Substance: METHOTREXATE
     Route: 048
  155. METHOTREXATE [Suspect]
     Active Substance: METHOTREXATE
     Route: 048
  156. METHOTREXATE [Suspect]
     Active Substance: METHOTREXATE
  157. METHOTREXATE [Suspect]
     Active Substance: METHOTREXATE
     Route: 048
  158. METHOTREXATE [Suspect]
     Active Substance: METHOTREXATE
  159. METHOTREXATE [Suspect]
     Active Substance: METHOTREXATE
     Route: 048
  160. METHOTREXATE [Suspect]
     Active Substance: METHOTREXATE
  161. METHOTREXATE [Suspect]
     Active Substance: METHOTREXATE
     Route: 058
  162. METHOTREXATE [Suspect]
     Active Substance: METHOTREXATE
     Route: 048
  163. METHOTREXATE [Suspect]
     Active Substance: METHOTREXATE
     Route: 048
  164. METHOTREXATE [Suspect]
     Active Substance: METHOTREXATE
     Route: 048
  165. METHOTREXATE [Suspect]
     Active Substance: METHOTREXATE
  166. METHOTREXATE [Suspect]
     Active Substance: METHOTREXATE
     Route: 048
  167. METHOTREXATE [Suspect]
     Active Substance: METHOTREXATE
     Route: 048
  168. METHOTREXATE [Suspect]
     Active Substance: METHOTREXATE
  169. METHOTREXATE [Suspect]
     Active Substance: METHOTREXATE
     Route: 058
  170. METHOTREXATE [Suspect]
     Active Substance: METHOTREXATE
     Route: 048
  171. METHOTREXATE [Suspect]
     Active Substance: METHOTREXATE
     Route: 048
  172. METHOTREXATE [Suspect]
     Active Substance: METHOTREXATE
  173. METHOTREXATE [Suspect]
     Active Substance: METHOTREXATE
     Route: 048
  174. METHOTREXATE [Suspect]
     Active Substance: METHOTREXATE
     Route: 048
  175. METHOTREXATE [Suspect]
     Active Substance: METHOTREXATE
     Route: 048
  176. METHOTREXATE [Suspect]
     Active Substance: METHOTREXATE
     Route: 048
  177. GLUCOSAMINE [Concomitant]
     Active Substance: GLUCOSAMINE
     Indication: Product used for unknown indication
  178. RAMIPRIL [Suspect]
     Active Substance: RAMIPRIL
     Indication: Product used for unknown indication
  179. MOXIFLOXACIN HYDROCHLORIDE [Suspect]
     Active Substance: MOXIFLOXACIN HYDROCHLORIDE
     Indication: Rheumatoid arthritis
     Route: 058
  180. ENBREL [Suspect]
     Active Substance: ETANERCEPT
     Indication: Rheumatoid arthritis
     Dosage: 50 MG, WE (50 MG, QW (1 EVERY 1 WEEKS)), DOSE FORM: SOLUTION FOR INJECTION
     Route: 058
  181. ENBREL [Suspect]
     Active Substance: ETANERCEPT
     Indication: Psoriatic arthropathy
     Route: 058
  182. ENBREL [Suspect]
     Active Substance: ETANERCEPT
     Dosage: 50 MG, WE (50 MG, QW (1 EVERY 1 WEEKS)), DOSE FORM: SOLUTION FOR INJECTION
     Route: 058
  183. ENBREL [Suspect]
     Active Substance: ETANERCEPT
     Route: 058
  184. ENBREL [Suspect]
     Active Substance: ETANERCEPT
     Dosage: 20 MG QW, DOSE FORM: SOLUTION FOR INJECTION
     Route: 058
  185. ENBREL [Suspect]
     Active Substance: ETANERCEPT
  186. ENBREL [Suspect]
     Active Substance: ETANERCEPT
     Route: 058
  187. SULFASALAZINE [Suspect]
     Active Substance: SULFASALAZINE
     Indication: Rheumatoid arthritis
     Route: 048
  188. SULFASALAZINE [Suspect]
     Active Substance: SULFASALAZINE
     Dosage: 50 MG, QD
     Route: 048
  189. SULFASALAZINE [Suspect]
     Active Substance: SULFASALAZINE
     Route: 048
  190. SULFASALAZINE [Suspect]
     Active Substance: SULFASALAZINE
     Dosage: 1 G, QD
     Route: 048
  191. SULFASALAZINE [Suspect]
     Active Substance: SULFASALAZINE
     Dosage: 300 MG, QD
  192. SULFASALAZINE [Suspect]
     Active Substance: SULFASALAZINE
  193. SULFASALAZINE [Suspect]
     Active Substance: SULFASALAZINE
  194. SULFASALAZINE [Suspect]
     Active Substance: SULFASALAZINE
  195. SULFASALAZINE [Suspect]
     Active Substance: SULFASALAZINE
     Route: 048
  196. SULFASALAZINE [Suspect]
     Active Substance: SULFASALAZINE
     Route: 048
  197. SULFASALAZINE [Suspect]
     Active Substance: SULFASALAZINE
  198. SULFASALAZINE [Suspect]
     Active Substance: SULFASALAZINE
     Route: 048
  199. SULFASALAZINE [Suspect]
     Active Substance: SULFASALAZINE
     Dosage: 2000 MG BID
  200. SULFASALAZINE [Suspect]
     Active Substance: SULFASALAZINE
  201. PREDNISONE [Suspect]
     Active Substance: PREDNISONE
     Indication: Rheumatoid arthritis
     Route: 048
  202. PREDNISONE [Suspect]
     Active Substance: PREDNISONE
     Indication: Condition aggravated
     Route: 048
  203. PREDNISONE [Suspect]
     Active Substance: PREDNISONE
     Indication: Psoriatic arthropathy
  204. PREDNISONE [Suspect]
     Active Substance: PREDNISONE
     Route: 048
  205. PREDNISONE [Suspect]
     Active Substance: PREDNISONE
     Route: 042
  206. PREDNISONE [Suspect]
     Active Substance: PREDNISONE
     Route: 048
  207. PREDNISONE [Suspect]
     Active Substance: PREDNISONE
  208. PREDNISONE [Suspect]
     Active Substance: PREDNISONE
  209. PREDNISONE [Suspect]
     Active Substance: PREDNISONE
  210. PREDNISONE [Suspect]
     Active Substance: PREDNISONE
  211. PREDNISONE [Suspect]
     Active Substance: PREDNISONE
  212. CETRIMIDE [Suspect]
     Active Substance: CETRIMIDE
     Indication: Product used for unknown indication
  213. CETIRIZINE HYDROCHLORIDE [Suspect]
     Active Substance: CETIRIZINE HYDROCHLORIDE
     Indication: Off label use
  214. CETIRIZINE HYDROCHLORIDE [Suspect]
     Active Substance: CETIRIZINE HYDROCHLORIDE
     Indication: Rheumatoid arthritis
  215. CETIRIZINE HYDROCHLORIDE [Suspect]
     Active Substance: CETIRIZINE HYDROCHLORIDE
     Route: 048
  216. CETIRIZINE HYDROCHLORIDE [Suspect]
     Active Substance: CETIRIZINE HYDROCHLORIDE
     Route: 048
  217. PANTOPRAZOLE SODIUM [Concomitant]
     Active Substance: PANTOPRAZOLE SODIUM
     Indication: Product used for unknown indication
  218. CETIRIZINE HYDROCHLORIDE\PSEUDOEPHEDRINE HYDROCHLORIDE [Suspect]
     Active Substance: CETIRIZINE HYDROCHLORIDE\PSEUDOEPHEDRINE HYDROCHLORIDE
     Indication: Urticaria
  219. CETIRIZINE HYDROCHLORIDE\PSEUDOEPHEDRINE HYDROCHLORIDE [Suspect]
     Active Substance: CETIRIZINE HYDROCHLORIDE\PSEUDOEPHEDRINE HYDROCHLORIDE
     Indication: Rheumatoid arthritis
     Route: 048
  220. CETIRIZINE HYDROCHLORIDE\PSEUDOEPHEDRINE HYDROCHLORIDE [Suspect]
     Active Substance: CETIRIZINE HYDROCHLORIDE\PSEUDOEPHEDRINE HYDROCHLORIDE
     Indication: Off label use
  221. CETIRIZINE HYDROCHLORIDE\PSEUDOEPHEDRINE HYDROCHLORIDE [Suspect]
     Active Substance: CETIRIZINE HYDROCHLORIDE\PSEUDOEPHEDRINE HYDROCHLORIDE
  222. CETIRIZINE HYDROCHLORIDE\PSEUDOEPHEDRINE HYDROCHLORIDE [Suspect]
     Active Substance: CETIRIZINE HYDROCHLORIDE\PSEUDOEPHEDRINE HYDROCHLORIDE
     Route: 048
  223. CETIRIZINE HYDROCHLORIDE\PSEUDOEPHEDRINE HYDROCHLORIDE [Suspect]
     Active Substance: CETIRIZINE HYDROCHLORIDE\PSEUDOEPHEDRINE HYDROCHLORIDE
  224. CETIRIZINE HYDROCHLORIDE\PSEUDOEPHEDRINE HYDROCHLORIDE [Suspect]
     Active Substance: CETIRIZINE HYDROCHLORIDE\PSEUDOEPHEDRINE HYDROCHLORIDE
  225. CETIRIZINE HYDROCHLORIDE\PSEUDOEPHEDRINE HYDROCHLORIDE [Suspect]
     Active Substance: CETIRIZINE HYDROCHLORIDE\PSEUDOEPHEDRINE HYDROCHLORIDE
  226. CETIRIZINE HYDROCHLORIDE\PSEUDOEPHEDRINE HYDROCHLORIDE [Suspect]
     Active Substance: CETIRIZINE HYDROCHLORIDE\PSEUDOEPHEDRINE HYDROCHLORIDE
  227. CETIRIZINE HYDROCHLORIDE\PSEUDOEPHEDRINE HYDROCHLORIDE [Suspect]
     Active Substance: CETIRIZINE HYDROCHLORIDE\PSEUDOEPHEDRINE HYDROCHLORIDE
  228. DOCONEXENT [Concomitant]
     Active Substance: DOCONEXENT
     Indication: Product used for unknown indication
  229. ERGOCALCIFEROL [Concomitant]
     Active Substance: ERGOCALCIFEROL
     Indication: Product used for unknown indication
  230. RITUXIMAB [Suspect]
     Active Substance: RITUXIMAB
     Indication: Rheumatoid arthritis
  231. RITUXIMAB [Suspect]
     Active Substance: RITUXIMAB
  232. RITUXIMAB [Suspect]
     Active Substance: RITUXIMAB
     Route: 042
  233. RITUXIMAB [Suspect]
     Active Substance: RITUXIMAB
     Route: 058
  234. RITUXIMAB [Suspect]
     Active Substance: RITUXIMAB
  235. RITUXIMAB [Suspect]
     Active Substance: RITUXIMAB
     Route: 042
  236. RITUXIMAB [Suspect]
     Active Substance: RITUXIMAB
  237. RITUXIMAB [Suspect]
     Active Substance: RITUXIMAB
  238. HYALURONIDASE [Suspect]
     Active Substance: HYALURONIDASE
     Indication: Rheumatoid arthritis
  239. LANSOPRAZOLE [Concomitant]
     Active Substance: LANSOPRAZOLE
     Indication: Product used for unknown indication
  240. METHOTREXATE SODIUM [Suspect]
     Active Substance: METHOTREXATE SODIUM
     Indication: Rheumatoid arthritis
     Dosage: 1 DF, QD
     Route: 048
  241. METHOTREXATE SODIUM [Suspect]
     Active Substance: METHOTREXATE SODIUM
     Dosage: 2 G, QD
     Route: 048
  242. METHOTREXATE SODIUM [Suspect]
     Active Substance: METHOTREXATE SODIUM
     Dosage: 20 MG, QD
     Route: 048
  243. METHOTREXATE SODIUM [Suspect]
     Active Substance: METHOTREXATE SODIUM
  244. METHOTREXATE SODIUM [Suspect]
     Active Substance: METHOTREXATE SODIUM
     Dosage: 15 MG, QD
     Route: 048
  245. METHOTREXATE SODIUM [Suspect]
     Active Substance: METHOTREXATE SODIUM
  246. METHOTREXATE SODIUM [Suspect]
     Active Substance: METHOTREXATE SODIUM
     Route: 048
  247. METHOTREXATE SODIUM [Suspect]
     Active Substance: METHOTREXATE SODIUM
  248. METHOTREXATE SODIUM [Suspect]
     Active Substance: METHOTREXATE SODIUM
     Route: 058
  249. METHOTREXATE SODIUM [Suspect]
     Active Substance: METHOTREXATE SODIUM
     Route: 048
  250. METHOTREXATE SODIUM [Suspect]
     Active Substance: METHOTREXATE SODIUM
     Route: 048
  251. METHOTREXATE SODIUM [Suspect]
     Active Substance: METHOTREXATE SODIUM
     Dosage: 2 G, QD
     Route: 048
  252. ZESTRIL [Concomitant]
     Active Substance: LISINOPRIL
     Indication: Product used for unknown indication
  253. COSENTYX [Suspect]
     Active Substance: SECUKINUMAB
     Indication: Rheumatoid arthritis
  254. COSENTYX [Suspect]
     Active Substance: SECUKINUMAB
     Indication: Psoriatic arthropathy
  255. COSENTYX [Suspect]
     Active Substance: SECUKINUMAB
  256. COSENTYX [Suspect]
     Active Substance: SECUKINUMAB
  257. COSENTYX [Suspect]
     Active Substance: SECUKINUMAB
  258. MELOXICAM [Concomitant]
     Active Substance: MELOXICAM
     Indication: Product used for unknown indication
  259. MYCOPHENOLATE MOFETIL [Suspect]
     Active Substance: MYCOPHENOLATE MOFETIL
     Indication: Product used for unknown indication
  260. MYCOPHENOLATE MOFETIL [Suspect]
     Active Substance: MYCOPHENOLATE MOFETIL
     Route: 042
  261. DESOXIMETASONE [Suspect]
     Active Substance: DESOXIMETASONE
     Indication: Rheumatoid arthritis
  262. DESOXIMETASONE [Suspect]
     Active Substance: DESOXIMETASONE
     Indication: Off label use
     Route: 048
  263. DESOXIMETASONE [Suspect]
     Active Substance: DESOXIMETASONE
  264. DESOXIMETASONE [Suspect]
     Active Substance: DESOXIMETASONE
     Route: 058
  265. DESOXIMETASONE [Suspect]
     Active Substance: DESOXIMETASONE
     Route: 048
  266. DESOXIMETASONE [Suspect]
     Active Substance: DESOXIMETASONE
     Route: 058
  267. DESOXIMETASONE [Suspect]
     Active Substance: DESOXIMETASONE
  268. DESOXIMETASONE [Suspect]
     Active Substance: DESOXIMETASONE
  269. DESOXIMETASONE [Suspect]
     Active Substance: DESOXIMETASONE
  270. DESOXIMETASONE [Suspect]
     Active Substance: DESOXIMETASONE
  271. DESOXIMETASONE [Suspect]
     Active Substance: DESOXIMETASONE
     Route: 058
  272. DESOXIMETASONE [Suspect]
     Active Substance: DESOXIMETASONE
  273. DESOXIMETASONE [Suspect]
     Active Substance: DESOXIMETASONE
  274. ACETAMINOPHEN\OXYCODONE HYDROCHLORIDE [Suspect]
     Active Substance: ACETAMINOPHEN\OXYCODONE HYDROCHLORIDE
     Indication: Product used for unknown indication
  275. TUMS ULTRA [Suspect]
     Active Substance: CALCIUM CARBONATE
     Indication: Product used for unknown indication
  276. TUMS ULTRA [Suspect]
     Active Substance: CALCIUM CARBONATE
  277. TUMS ULTRA [Suspect]
     Active Substance: CALCIUM CARBONATE
  278. NAPROXEN SODIUM [Suspect]
     Active Substance: NAPROXEN SODIUM
     Indication: Rheumatoid arthritis
     Dosage: 1 DF, QD
  279. NAPROXEN SODIUM [Suspect]
     Active Substance: NAPROXEN SODIUM
  280. NAPROXEN SODIUM [Suspect]
     Active Substance: NAPROXEN SODIUM
  281. NAPROXEN SODIUM [Suspect]
     Active Substance: NAPROXEN SODIUM
  282. REMICADE [Suspect]
     Active Substance: INFLIXIMAB
     Indication: Colitis ulcerative
     Route: 042
  283. REMICADE [Suspect]
     Active Substance: INFLIXIMAB
     Indication: Rheumatoid arthritis
     Route: 058
  284. REMICADE [Suspect]
     Active Substance: INFLIXIMAB
     Route: 042
  285. REMICADE [Suspect]
     Active Substance: INFLIXIMAB
     Route: 042
  286. REMICADE [Suspect]
     Active Substance: INFLIXIMAB
  287. REMICADE [Suspect]
     Active Substance: INFLIXIMAB
  288. OTEZLA [Suspect]
     Active Substance: APREMILAST
     Indication: Product used for unknown indication
  289. OTEZLA [Suspect]
     Active Substance: APREMILAST
     Route: 048
  290. OTEZLA [Suspect]
     Active Substance: APREMILAST
     Route: 048
  291. OTEZLA [Suspect]
     Active Substance: APREMILAST
     Dosage: 6 MG, BID
     Route: 048
  292. ARAVA [Suspect]
     Active Substance: LEFLUNOMIDE
     Indication: Rheumatoid arthritis
  293. ARAVA [Suspect]
     Active Substance: LEFLUNOMIDE
  294. ARAVA [Suspect]
     Active Substance: LEFLUNOMIDE
  295. ARAVA [Suspect]
     Active Substance: LEFLUNOMIDE
  296. ARAVA [Suspect]
     Active Substance: LEFLUNOMIDE
     Dosage: 20 MG, QD
     Route: 048
  297. ARAVA [Suspect]
     Active Substance: LEFLUNOMIDE
  298. ARAVA [Suspect]
     Active Substance: LEFLUNOMIDE
     Route: 048
  299. ARAVA [Suspect]
     Active Substance: LEFLUNOMIDE
     Route: 048
  300. ARAVA [Suspect]
     Active Substance: LEFLUNOMIDE
  301. PSEUDOEPHEDRINE HYDROCHLORIDE [Suspect]
     Active Substance: PSEUDOEPHEDRINE HYDROCHLORIDE
     Indication: Off label use
  302. PSEUDOEPHEDRINE HYDROCHLORIDE [Suspect]
     Active Substance: PSEUDOEPHEDRINE HYDROCHLORIDE
     Indication: Rheumatoid arthritis
  303. PSEUDOEPHEDRINE HYDROCHLORIDE [Suspect]
     Active Substance: PSEUDOEPHEDRINE HYDROCHLORIDE
  304. PSEUDOEPHEDRINE HYDROCHLORIDE [Suspect]
     Active Substance: PSEUDOEPHEDRINE HYDROCHLORIDE
  305. XELJANZ [Suspect]
     Active Substance: TOFACITINIB CITRATE
     Indication: Psoriatic arthropathy
  306. XELJANZ [Suspect]
     Active Substance: TOFACITINIB CITRATE
     Indication: Rheumatoid arthritis
  307. XELJANZ [Suspect]
     Active Substance: TOFACITINIB CITRATE
  308. XELJANZ [Suspect]
     Active Substance: TOFACITINIB CITRATE
     Route: 048
  309. XELJANZ [Suspect]
     Active Substance: TOFACITINIB CITRATE
  310. XELJANZ [Suspect]
     Active Substance: TOFACITINIB CITRATE
  311. XELJANZ [Suspect]
     Active Substance: TOFACITINIB CITRATE
     Dosage: 5 MG, BID
  312. XELJANZ [Suspect]
     Active Substance: TOFACITINIB CITRATE
  313. XELJANZ [Suspect]
     Active Substance: TOFACITINIB CITRATE
     Route: 048
  314. XELJANZ [Suspect]
     Active Substance: TOFACITINIB CITRATE
     Dosage: 5 MG, QD
     Route: 048
  315. XELJANZ [Suspect]
     Active Substance: TOFACITINIB CITRATE
  316. XELJANZ [Suspect]
     Active Substance: TOFACITINIB CITRATE
  317. XELJANZ [Suspect]
     Active Substance: TOFACITINIB CITRATE
  318. XELJANZ [Suspect]
     Active Substance: TOFACITINIB CITRATE
     Route: 048
  319. XELJANZ [Suspect]
     Active Substance: TOFACITINIB CITRATE
     Route: 048
  320. XELJANZ [Suspect]
     Active Substance: TOFACITINIB CITRATE
     Dosage: 5 MG QW
     Route: 048
  321. XELJANZ [Suspect]
     Active Substance: TOFACITINIB CITRATE
  322. XELJANZ [Suspect]
     Active Substance: TOFACITINIB CITRATE
  323. XELJANZ [Suspect]
     Active Substance: TOFACITINIB CITRATE
     Route: 048
  324. VITAMIN C [Suspect]
     Active Substance: ASCORBIC ACID
     Indication: Product used for unknown indication
  325. VITAMIN C [Suspect]
     Active Substance: ASCORBIC ACID
  326. PREDNISOLONE [Concomitant]
     Active Substance: PREDNISOLONE
     Indication: Product used for unknown indication
  327. RISEDRONATE SODIUM [Concomitant]
     Active Substance: RISEDRONATE SODIUM
     Indication: Product used for unknown indication
  328. LORAZEPAM [Concomitant]
     Active Substance: LORAZEPAM
     Indication: Product used for unknown indication
  329. OXYCODONE [Suspect]
     Active Substance: OXYCODONE
     Indication: Product used for unknown indication
  330. OXYCODONE TEREPHTHALATE [Suspect]
     Active Substance: OXYCODONE TEREPHTHALATE
     Indication: Product used for unknown indication
  331. QUETIAPINE FUMARATE [Suspect]
     Active Substance: QUETIAPINE FUMARATE
     Indication: Product used for unknown indication
  332. QUETIAPINE FUMARATE [Suspect]
     Active Substance: QUETIAPINE FUMARATE
  333. QUETIAPINE FUMARATE [Suspect]
     Active Substance: QUETIAPINE FUMARATE
     Route: 042
  334. CODEINE [Concomitant]
     Active Substance: CODEINE
     Indication: Product used for unknown indication
  335. CODEINE [Concomitant]
     Active Substance: CODEINE
  336. CETIRIZINE HYDROCHLORIDE [Suspect]
     Active Substance: CETIRIZINE HYDROCHLORIDE
     Indication: Off label use
  337. CETIRIZINE HYDROCHLORIDE [Suspect]
     Active Substance: CETIRIZINE HYDROCHLORIDE
     Indication: Rheumatoid arthritis
  338. CETIRIZINE HYDROCHLORIDE [Suspect]
     Active Substance: CETIRIZINE HYDROCHLORIDE
     Indication: Urticaria
     Route: 048
  339. CETIRIZINE HYDROCHLORIDE [Suspect]
     Active Substance: CETIRIZINE HYDROCHLORIDE
  340. CETIRIZINE HYDROCHLORIDE [Suspect]
     Active Substance: CETIRIZINE HYDROCHLORIDE
  341. CETIRIZINE HYDROCHLORIDE [Suspect]
     Active Substance: CETIRIZINE HYDROCHLORIDE
  342. CETIRIZINE HYDROCHLORIDE [Suspect]
     Active Substance: CETIRIZINE HYDROCHLORIDE
  343. CETIRIZINE HYDROCHLORIDE [Suspect]
     Active Substance: CETIRIZINE HYDROCHLORIDE
  344. CETIRIZINE HYDROCHLORIDE [Suspect]
     Active Substance: CETIRIZINE HYDROCHLORIDE
  345. ACETAMINOPHEN [Concomitant]
     Active Substance: ACETAMINOPHEN
     Indication: Product used for unknown indication
  346. ACETAMINOPHEN [Concomitant]
     Active Substance: ACETAMINOPHEN
  347. ATIVAN [Concomitant]
     Active Substance: LORAZEPAM
     Indication: Product used for unknown indication
  348. LYRICA [Suspect]
     Active Substance: PREGABALIN
     Indication: Product used for unknown indication
  349. PIROXICAM [Concomitant]
     Active Substance: PIROXICAM
     Indication: Product used for unknown indication
  350. LEVOTHYROXINE SODIUM [Concomitant]
     Active Substance: LEVOTHYROXINE SODIUM
     Indication: Product used for unknown indication
  351. MOXIFLOXACIN [Suspect]
     Active Substance: MOXIFLOXACIN
     Indication: Rheumatoid arthritis
     Route: 058
  352. VITAMIN D3 [Suspect]
     Active Substance: CHOLECALCIFEROL
     Indication: Product used for unknown indication
  353. VITAMIN D3 [Suspect]
     Active Substance: CHOLECALCIFEROL
  354. VITAMIN D3 [Suspect]
     Active Substance: CHOLECALCIFEROL
  355. ACTEMRA [Suspect]
     Active Substance: TOCILIZUMAB
     Indication: Rheumatoid arthritis
  356. ACTEMRA [Suspect]
     Active Substance: TOCILIZUMAB
  357. ACTEMRA [Suspect]
     Active Substance: TOCILIZUMAB
     Route: 042
  358. ACTEMRA [Suspect]
     Active Substance: TOCILIZUMAB
     Route: 042
  359. ACTEMRA [Suspect]
     Active Substance: TOCILIZUMAB
  360. ACTEMRA [Suspect]
     Active Substance: TOCILIZUMAB
     Route: 058
  361. ACTEMRA [Suspect]
     Active Substance: TOCILIZUMAB
     Route: 042
  362. ACTEMRA [Suspect]
     Active Substance: TOCILIZUMAB
     Route: 048
  363. ACTEMRA [Suspect]
     Active Substance: TOCILIZUMAB
     Route: 042
  364. ACTEMRA [Suspect]
     Active Substance: TOCILIZUMAB
     Route: 058
  365. ACTEMRA [Suspect]
     Active Substance: TOCILIZUMAB
  366. ACTEMRA [Suspect]
     Active Substance: TOCILIZUMAB
     Route: 042
  367. ACTEMRA [Suspect]
     Active Substance: TOCILIZUMAB
     Route: 042
  368. ACTEMRA [Suspect]
     Active Substance: TOCILIZUMAB
  369. ACTEMRA [Suspect]
     Active Substance: TOCILIZUMAB
  370. HYDROCORTISONE [Suspect]
     Active Substance: HYDROCORTISONE
     Indication: Rheumatoid arthritis
     Route: 048
  371. HYDROCORTISONE [Suspect]
     Active Substance: HYDROCORTISONE
     Indication: Inflammation
  372. HYDROCORTISONE [Suspect]
     Active Substance: HYDROCORTISONE
     Route: 058
  373. HYDROCORTISONE [Suspect]
     Active Substance: HYDROCORTISONE
     Route: 058
  374. HYDROCORTISONE [Suspect]
     Active Substance: HYDROCORTISONE
  375. DOXYCYCLINE HYCLATE [Suspect]
     Active Substance: DOXYCYCLINE HYCLATE
     Indication: Product used for unknown indication
  376. INFLIXIMAB [Suspect]
     Active Substance: INFLIXIMAB
     Indication: Rheumatoid arthritis
  377. INFLIXIMAB [Suspect]
     Active Substance: INFLIXIMAB
     Indication: Psoriatic arthropathy
  378. INFLIXIMAB [Suspect]
     Active Substance: INFLIXIMAB
     Route: 042
  379. TRIAMCINOLONE ACETONIDE [Suspect]
     Active Substance: TRIAMCINOLONE ACETONIDE
     Indication: Rheumatoid arthritis
  380. PREDNISONE [Suspect]
     Active Substance: PREDNISONE
     Indication: Inflammation
  381. PREDNISONE [Suspect]
     Active Substance: PREDNISONE
     Indication: Synovitis
  382. PREDNISONE [Suspect]
     Active Substance: PREDNISONE
     Indication: Systemic lupus erythematosus
  383. PREDNISONE [Suspect]
     Active Substance: PREDNISONE
     Indication: Bursitis
  384. PREDNISONE [Suspect]
     Active Substance: PREDNISONE
     Indication: Pemphigus
     Route: 048
  385. PREDNISONE [Suspect]
     Active Substance: PREDNISONE
     Indication: Psoriatic arthropathy
  386. PREDNISONE [Suspect]
     Active Substance: PREDNISONE
     Indication: Rheumatoid arthritis
     Route: 048
  387. SIMPONI [Suspect]
     Active Substance: GOLIMUMAB
     Indication: Rheumatoid arthritis
     Route: 058
  388. SIMPONI [Suspect]
     Active Substance: GOLIMUMAB
     Route: 058
  389. SIMPONI [Suspect]
     Active Substance: GOLIMUMAB
  390. SIMPONI [Suspect]
     Active Substance: GOLIMUMAB
     Route: 058
  391. SIMPONI [Suspect]
     Active Substance: GOLIMUMAB
     Route: 042
  392. SIMPONI [Suspect]
     Active Substance: GOLIMUMAB
     Route: 058
  393. SIMPONI [Suspect]
     Active Substance: GOLIMUMAB
     Route: 058
  394. SIMPONI [Suspect]
     Active Substance: GOLIMUMAB
     Route: 058
  395. LISINOPRIL [Concomitant]
     Active Substance: LISINOPRIL
     Indication: Product used for unknown indication
  396. LISINOPRIL [Concomitant]
     Active Substance: LISINOPRIL
  397. DICLOFENAC SODIUM [Suspect]
     Active Substance: DICLOFENAC SODIUM
     Indication: Product used for unknown indication
  398. DICLOFENAC SODIUM [Suspect]
     Active Substance: DICLOFENAC SODIUM
     Indication: Rheumatoid arthritis
  399. DICLOFENAC SODIUM [Suspect]
     Active Substance: DICLOFENAC SODIUM
     Indication: Osteoarthritis
  400. DICLOFENAC SODIUM [Suspect]
     Active Substance: DICLOFENAC SODIUM
     Indication: Inflammation
  401. DICLOFENAC SODIUM [Suspect]
     Active Substance: DICLOFENAC SODIUM
     Route: 058
  402. DICLOFENAC SODIUM [Suspect]
     Active Substance: DICLOFENAC SODIUM
  403. DICLOFENAC SODIUM [Suspect]
     Active Substance: DICLOFENAC SODIUM
  404. DICLOFENAC SODIUM [Suspect]
     Active Substance: DICLOFENAC SODIUM
  405. DICLOFENAC SODIUM [Suspect]
     Active Substance: DICLOFENAC SODIUM
  406. DICLOFENAC SODIUM [Suspect]
     Active Substance: DICLOFENAC SODIUM
  407. DICLOFENAC SODIUM [Suspect]
     Active Substance: DICLOFENAC SODIUM
  408. PERIOGARD [Suspect]
     Active Substance: CHLORHEXIDINE GLUCONATE
     Indication: Product used for unknown indication
  409. PERIOGARD [Suspect]
     Active Substance: CHLORHEXIDINE GLUCONATE
  410. DEXAMETHASONE [Concomitant]
     Active Substance: DEXAMETHASONE
     Indication: Product used for unknown indication
  411. HYDROXYCHLOROQUINE [Suspect]
     Active Substance: HYDROXYCHLOROQUINE
     Indication: Rheumatoid arthritis
     Route: 058
  412. HYDROXYCHLOROQUINE [Suspect]
     Active Substance: HYDROXYCHLOROQUINE
     Indication: Systemic lupus erythematosus
     Dosage: 400 MG QD
  413. HYDROXYCHLOROQUINE [Suspect]
     Active Substance: HYDROXYCHLOROQUINE
     Dosage: 1 MG QD
     Route: 048
  414. HYDROXYCHLOROQUINE [Suspect]
     Active Substance: HYDROXYCHLOROQUINE
     Dosage: 40 MG QD, ROA: URETHRAL
  415. HYDROXYCHLOROQUINE [Suspect]
     Active Substance: HYDROXYCHLOROQUINE
     Route: 058
  416. HYDROXYCHLOROQUINE [Suspect]
     Active Substance: HYDROXYCHLOROQUINE
     Route: 048
  417. HYDROXYCHLOROQUINE [Suspect]
     Active Substance: HYDROXYCHLOROQUINE
  418. HYDROXYCHLOROQUINE [Suspect]
     Active Substance: HYDROXYCHLOROQUINE
     Dosage: 40 MG QD
     Route: 048
  419. HYDROXYCHLOROQUINE [Suspect]
     Active Substance: HYDROXYCHLOROQUINE
  420. HYDROXYCHLOROQUINE [Suspect]
     Active Substance: HYDROXYCHLOROQUINE
  421. HYDROXYCHLOROQUINE [Suspect]
     Active Substance: HYDROXYCHLOROQUINE
  422. HYDROXYCHLOROQUINE [Suspect]
     Active Substance: HYDROXYCHLOROQUINE
     Dosage: 400 MG QD, ROA: URETHRAL
  423. HYDROXYCHLOROQUINE [Suspect]
     Active Substance: HYDROXYCHLOROQUINE
  424. HYDROXYCHLOROQUINE [Suspect]
     Active Substance: HYDROXYCHLOROQUINE
  425. HYDROXYCHLOROQUINE [Suspect]
     Active Substance: HYDROXYCHLOROQUINE
     Dosage: 400 MG QD
  426. HYDROXYCHLOROQUINE [Suspect]
     Active Substance: HYDROXYCHLOROQUINE
     Route: 048
  427. HYDROXYCHLOROQUINE [Suspect]
     Active Substance: HYDROXYCHLOROQUINE
     Route: 048
  428. DIETARY SUPPLEMENT\MINERALS\VITAMINS [Suspect]
     Active Substance: DIETARY SUPPLEMENT\MINERALS\VITAMINS
     Indication: Rheumatoid arthritis
  429. DIETARY SUPPLEMENT\MINERALS\VITAMINS [Suspect]
     Active Substance: DIETARY SUPPLEMENT\MINERALS\VITAMINS
  430. DIETARY SUPPLEMENT\MINERALS\VITAMINS [Suspect]
     Active Substance: DIETARY SUPPLEMENT\MINERALS\VITAMINS
     Route: 048
  431. ENBREL [Suspect]
     Active Substance: ETANERCEPT
     Indication: Product used for unknown indication
     Dosage: 50 MG, WE (50 MG, QW)
  432. HYDROXYCHLOROQUINE SULFATE [Suspect]
     Active Substance: HYDROXYCHLOROQUINE SULFATE
     Indication: Systemic lupus erythematosus
     Route: 048
  433. HYDROXYCHLOROQUINE SULFATE [Suspect]
     Active Substance: HYDROXYCHLOROQUINE SULFATE
     Indication: Rheumatoid arthritis
  434. HYDROXYCHLOROQUINE SULFATE [Suspect]
     Active Substance: HYDROXYCHLOROQUINE SULFATE
  435. HYDROXYCHLOROQUINE SULFATE [Suspect]
     Active Substance: HYDROXYCHLOROQUINE SULFATE
  436. HYDROXYCHLOROQUINE SULFATE [Suspect]
     Active Substance: HYDROXYCHLOROQUINE SULFATE
     Route: 048
  437. HYDROXYCHLOROQUINE SULFATE [Suspect]
     Active Substance: HYDROXYCHLOROQUINE SULFATE
     Route: 058
  438. HYDROXYCHLOROQUINE SULFATE [Suspect]
     Active Substance: HYDROXYCHLOROQUINE SULFATE
     Route: 048
  439. HYDROXYCHLOROQUINE SULFATE [Suspect]
     Active Substance: HYDROXYCHLOROQUINE SULFATE
  440. HYDROXYCHLOROQUINE SULFATE [Suspect]
     Active Substance: HYDROXYCHLOROQUINE SULFATE
     Route: 048
  441. HYDROXYCHLOROQUINE SULFATE [Suspect]
     Active Substance: HYDROXYCHLOROQUINE SULFATE
     Dosage: 400 MG QD, ROA: URETHRAL
  442. HYDROXYCHLOROQUINE SULFATE [Suspect]
     Active Substance: HYDROXYCHLOROQUINE SULFATE
  443. HYDROXYCHLOROQUINE SULFATE [Suspect]
     Active Substance: HYDROXYCHLOROQUINE SULFATE
     Dosage: 1 DOSAGE FORM QD
     Route: 048
  444. HYDROXYCHLOROQUINE SULFATE [Suspect]
     Active Substance: HYDROXYCHLOROQUINE SULFATE

REACTIONS (120)
  - Type 2 diabetes mellitus [Fatal]
  - Weight fluctuation [Fatal]
  - Prescribed overdose [Fatal]
  - X-ray abnormal [Fatal]
  - Pemphigus [Fatal]
  - Nausea [Fatal]
  - Sleep disorder due to a general medical condition [Fatal]
  - Wound infection [Fatal]
  - Malaise [Fatal]
  - Sleep disorder due to general medical condition, insomnia type [Fatal]
  - Therapy non-responder [Fatal]
  - Hip arthroplasty [Fatal]
  - Treatment failure [Fatal]
  - Muscle spasms [Fatal]
  - Insomnia [Fatal]
  - Dry mouth [Fatal]
  - Synovitis [Fatal]
  - Pericarditis [Fatal]
  - Weight increased [Fatal]
  - Intentional product use issue [Fatal]
  - Gait inability [Fatal]
  - Swelling [Fatal]
  - Glossodynia [Fatal]
  - Dizziness [Fatal]
  - Headache [Fatal]
  - Dyspnoea [Fatal]
  - Arthropathy [Fatal]
  - Infection [Fatal]
  - Abdominal discomfort [Fatal]
  - Alopecia [Fatal]
  - Arthralgia [Fatal]
  - General physical health deterioration [Fatal]
  - Musculoskeletal pain [Fatal]
  - Psoriatic arthropathy [Fatal]
  - Muscle injury [Fatal]
  - Joint swelling [Fatal]
  - Injury [Fatal]
  - Helicobacter infection [Fatal]
  - Musculoskeletal stiffness [Fatal]
  - Autoimmune disorder [Fatal]
  - Asthenia [Fatal]
  - Irritable bowel syndrome [Fatal]
  - Rheumatic fever [Fatal]
  - Contusion [Fatal]
  - Decreased appetite [Fatal]
  - Blood cholesterol increased [Fatal]
  - C-reactive protein [Fatal]
  - Condition aggravated [Fatal]
  - Pyrexia [Fatal]
  - Swollen joint count [Fatal]
  - Rheumatoid arthritis [Fatal]
  - Pruritus [Fatal]
  - C-reactive protein abnormal [Fatal]
  - Fibromyalgia [Fatal]
  - Obesity [Fatal]
  - Asthma [Fatal]
  - Folliculitis [Fatal]
  - Anxiety [Fatal]
  - Paraesthesia [Fatal]
  - Product use issue [Fatal]
  - Road traffic accident [Fatal]
  - Discomfort [Fatal]
  - Ill-defined disorder [Fatal]
  - Sciatica [Fatal]
  - Knee arthroplasty [Fatal]
  - Hypersensitivity [Fatal]
  - Lung disorder [Fatal]
  - Swollen joint count increased [Fatal]
  - Lower limb fracture [Fatal]
  - Inflammation [Fatal]
  - Anti-cyclic citrullinated peptide antibody positive [Fatal]
  - Nasopharyngitis [Fatal]
  - Peripheral swelling [Fatal]
  - Infusion related reaction [Fatal]
  - Joint range of motion decreased [Fatal]
  - Duodenal ulcer perforation [Fatal]
  - Facet joint syndrome [Fatal]
  - Confusional state [Fatal]
  - Liver disorder [Fatal]
  - Deep vein thrombosis postoperative [Fatal]
  - Pregnancy [Fatal]
  - Lower respiratory tract infection [Fatal]
  - Pain [Fatal]
  - Rash [Fatal]
  - Gastrointestinal disorder [Fatal]
  - Blister [Fatal]
  - Chest pain [Fatal]
  - Drug hypersensitivity [Fatal]
  - Bursitis [Fatal]
  - Sinusitis [Fatal]
  - Sleep disorder due to general medical condition, hypersomnia type [Fatal]
  - Osteoarthritis [Fatal]
  - Rheumatoid factor positive [Fatal]
  - Impaired healing [Fatal]
  - Diarrhoea [Fatal]
  - Fatigue [Fatal]
  - Hypoaesthesia [Fatal]
  - Stomatitis [Fatal]
  - Systemic lupus erythematosus [Fatal]
  - Drug intolerance [Fatal]
  - Mobility decreased [Fatal]
  - Abdominal pain upper [Fatal]
  - Hand deformity [Fatal]
  - Contraindicated product administered [Fatal]
  - Lip dry [Fatal]
  - Oedema [Fatal]
  - Peripheral venous disease [Fatal]
  - Liver injury [Fatal]
  - Hypertension [Fatal]
  - Hepatic enzyme increased [Fatal]
  - Night sweats [Fatal]
  - Maternal exposure during pregnancy [Fatal]
  - Drug ineffective [Fatal]
  - Off label use [Fatal]
  - Tender joint count [Fatal]
  - Therapeutic product effect decreased [Fatal]
  - Urticaria [Fatal]
  - Vomiting [Fatal]
  - Wheezing [Fatal]
  - Wound [Fatal]
